FAERS Safety Report 6291769-2 (Version None)
Quarter: 2009Q3

REPORT INFORMATION
  Report Type: 
  Country: None (occurrence: None)
  Receive Date: 20090730
  Receipt Date: 20090723
  Transmission Date: 20100115
  Serious: Yes (Disabling)
  Sender: FDA-Public Use
  Company Number: AU-B.I. PHARMACEUTICALS,INC./RIDGEFIELD-2009-AU-00372AU

PATIENT
  Sex: Female

DRUGS (1)
  1. MOVALIS [Suspect]
     Indication: BACK PAIN

REACTIONS (2)
  - HYPERSENSITIVITY [None]
  - PAIN [None]
